FAERS Safety Report 6570735-3 (Version None)
Quarter: 2010Q1

REPORT INFORMATION
  Report Type: 
  Country: None (occurrence: None)
  Receive Date: 20100204
  Receipt Date: 20100128
  Transmission Date: 20100710
  Serious: Yes (Disabling)
  Sender: FDA-Public Use
  Company Number: B0629965B

PATIENT
  Sex: Female

DRUGS (5)
  1. MELPHALAN HYDROCHLORIDE [Suspect]
     Indication: MULTIPLE MYELOMA
     Dosage: 10MG CYCLIC
     Route: 048
     Dates: start: 20090923, end: 20091230
  2. DEXAMETHASONE [Suspect]
     Indication: MULTIPLE MYELOMA
     Dosage: 20MG CYCLIC
     Route: 048
     Dates: start: 20090923, end: 20091230
  3. ACYCLOVIR [Concomitant]
     Indication: ANTIVIRAL PROPHYLAXIS
     Route: 048
  4. AREDIA [Concomitant]
     Indication: OSTEOPOROSIS
     Route: 042
  5. DURAGESIC-100 [Concomitant]

REACTIONS (2)
  - ASTHENIA [None]
  - FATIGUE [None]
